FAERS Safety Report 7699847-8 (Version None)
Quarter: 2011Q3

REPORT INFORMATION
  Report Type: 
  Country: None (occurrence: None)
  Receive Date: 20110822
  Receipt Date: 20090306
  Transmission Date: 20111222
  Serious: No
  Sender: FDA-Public Use
  Company Number: 2009BI007446

PATIENT
  Age: 46 Year
  Sex: Male

DRUGS (1)
  1. TYSABRI [Suspect]
     Indication: MULTIPLE SCLEROSIS
     Route: 042
     Dates: start: 20070727

REACTIONS (5)
  - COORDINATION ABNORMAL [None]
  - DRUG EFFECT DECREASED [None]
  - ARTERIAL OCCLUSIVE DISEASE [None]
  - MUSCULAR WEAKNESS [None]
  - TEMPERATURE INTOLERANCE [None]
